FAERS Safety Report 20415465 (Version 1)
Quarter: 2022Q1

REPORT INFORMATION
  Report Type: Spontaneous
  Country: IN (occurrence: IN)
  Receive Date: 20220202
  Receipt Date: 20220202
  Transmission Date: 20220424
  Serious: Yes (Other)
  Sender: FDA-Public Use
  Company Number: IN-SUN PHARMACEUTICAL INDUSTRIES LTD-2022R1-324816

PATIENT
  Age: 23 Year
  Sex: Female

DRUGS (1)
  1. ETHINYL ESTRADIOL\LEVONORGESTREL [Suspect]
     Active Substance: ETHINYL ESTRADIOL\LEVONORGESTREL
     Indication: Polycystic ovaries
     Dosage: 0.03 MG AND 0.15 MG
     Route: 048

REACTIONS (3)
  - Hemiplegia [Recovering/Resolving]
  - Aphasia [Recovering/Resolving]
  - Thrombosis [Recovering/Resolving]
